FAERS Safety Report 8929159 (Version 3)
Quarter: 2013Q1

REPORT INFORMATION
  Report Type: Report from Study
  Country: NL (occurrence: NL)
  Receive Date: 20121128
  Receipt Date: 20130128
  Transmission Date: 20140127
  Serious: Yes (Hospitalization)
  Sender: FDA-Public Use
  Company Number: NL-009507513-1211NLD008730

PATIENT
  Age: 2 Year
  Sex: Female
  Weight: 10.9 kg

DRUGS (26)
  1. BLINDED APREPITANT [Suspect]
     Indication: PROPHYLAXIS OF NAUSEA AND VOMITING
     Dosage: UNK
     Route: 048
     Dates: start: 20121101, end: 20121101
  2. BLINDED APREPITANT [Suspect]
     Indication: PROPHYLAXIS OF NAUSEA AND VOMITING
     Dosage: UNK
     Route: 048
     Dates: start: 20121101, end: 20121101
  3. BLINDED DEXAMETHASONE [Suspect]
     Indication: PROPHYLAXIS OF NAUSEA AND VOMITING
     Dosage: UNK
     Route: 048
     Dates: start: 20121101, end: 20121101
  4. BLINDED DEXAMETHASONE [Suspect]
     Indication: PROPHYLAXIS OF NAUSEA AND VOMITING
     Dosage: UNK
     Route: 048
     Dates: start: 20121101, end: 20121101
  5. BLINDED ONDANSETRON [Suspect]
     Indication: PROPHYLAXIS OF NAUSEA AND VOMITING
     Dosage: UNK
     Route: 048
     Dates: start: 20121101, end: 20121101
  6. BLINDED ONDANSETRON HCL [Suspect]
     Indication: PROPHYLAXIS OF NAUSEA AND VOMITING
     Dosage: UNK
     Route: 048
     Dates: start: 20121101, end: 20121101
  7. BLINDED PLACEBO [Suspect]
     Indication: PROPHYLAXIS OF NAUSEA AND VOMITING
     Dosage: UNK
     Route: 048
     Dates: start: 20121101, end: 20121101
  8. BLINDED POST TRIAL THERAPY [Suspect]
     Indication: PROPHYLAXIS OF NAUSEA AND VOMITING
     Dosage: UNK
     Route: 048
     Dates: start: 20121101, end: 20121101
  9. BLINDED PRE TRIAL THERAPY [Suspect]
     Indication: PROPHYLAXIS OF NAUSEA AND VOMITING
     Dosage: UNK
     Route: 048
     Dates: start: 20121101, end: 20121101
  10. BLINDED APREPITANT [Suspect]
     Dosage: UNK
     Route: 048
     Dates: start: 20121102, end: 20121103
  11. BLINDED APREPITANT [Suspect]
     Dosage: UNK
     Route: 048
     Dates: start: 20121102, end: 20121103
  12. BLINDED DEXAMETHASONE [Suspect]
     Dosage: UNK
     Route: 048
     Dates: start: 20121102, end: 20121103
  13. BLINDED DEXAMETHASONE [Suspect]
     Dosage: UNK
     Route: 048
     Dates: start: 20121102, end: 20121103
  14. BLINDED ONDANSETRON [Suspect]
     Dosage: UNK
     Route: 048
     Dates: start: 20121102, end: 20121103
  15. BLINDED ONDANSETRON HCL [Suspect]
     Dosage: UNK
     Route: 048
     Dates: start: 20121102, end: 20121103
  16. BLINDED PLACEBO [Suspect]
     Dosage: UNK
     Route: 048
     Dates: start: 20121102, end: 20121103
  17. BLINDED POST TRIAL THERAPY [Suspect]
     Dosage: UNK
     Route: 048
     Dates: start: 20121102, end: 20121103
  18. BLINDED PRE TRIAL THERAPY [Suspect]
     Dosage: UNK
     Route: 048
     Dates: start: 20121102, end: 20121103
  19. ONDANSETRON [Suspect]
     Indication: PROPHYLAXIS OF NAUSEA AND VOMITING
     Dosage: 2.6 MG, ONCE
     Route: 042
     Dates: start: 20121101, end: 20121101
  20. ONDANSETRON [Suspect]
     Dosage: 2.6 MG, BID
     Route: 042
     Dates: start: 20121102, end: 20121106
  21. DEXAMETHASONE [Concomitant]
     Indication: PROPHYLAXIS OF NAUSEA AND VOMITING
     Dosage: 50 ML, ONCE
     Route: 042
     Dates: start: 20121101, end: 20121101
  22. CEFTAZIDIME (+) VANCOMYCIN [Concomitant]
     Indication: FEBRILE NEUTROPENIA
     Dosage: UNK
     Dates: start: 201211, end: 20121114
  23. VINDESINE [Concomitant]
     Indication: CHEMOTHERAPY
     Dosage: 1.5 MG, QD
     Dates: start: 20121101, end: 20121102
  24. CISPLATIN [Concomitant]
     Indication: CHEMOTHERAPY
     Dosage: 20 MG, QD
     Dates: start: 20121101, end: 20121104
  25. ETOPOSIDE [Concomitant]
     Indication: CHEMOTHERAPY
     Dosage: 52 MG, QD
     Dates: start: 20121101, end: 20121104
  26. MEROPENEM [Concomitant]
     Indication: PROPHYLAXIS
     Dosage: UNK
     Dates: start: 20121021, end: 20121026

REACTIONS (1)
  - Febrile neutropenia [Recovered/Resolved]
